FAERS Safety Report 8935626 (Version 2)
Quarter: 2012Q4

REPORT INFORMATION
  Report Type: 
  Country: AR (occurrence: AR)
  Receive Date: 20121130
  Receipt Date: 20121221
  Transmission Date: 20130627
  Serious: Yes (Hospitalization, Other)
  Sender: FDA-Public Use
  Company Number: PHHY2012AR070332

PATIENT
  Sex: Male

DRUGS (1)
  1. EXFORGE [Suspect]
     Indication: BLOOD PRESSURE INCREASED
     Dosage: 1 DF(160 mg vals and 10 mg amlo), daily
     Dates: start: 2010

REACTIONS (2)
  - Cardiac neoplasm unspecified [Recovered/Resolved]
  - Eye haemorrhage [Recovered/Resolved]
